FAERS Safety Report 21121424 (Version 1)
Quarter: 2022Q3

REPORT INFORMATION
  Report Type: Report from Study
  Country: JP (occurrence: JP)
  Receive Date: 20220722
  Receipt Date: 20220722
  Transmission Date: 20221027
  Serious: Yes (Hospitalization, Disabling)
  Sender: FDA-Public Use
  Company Number: JP-BIOGEN-2019BI00692796

PATIENT
  Age: 52 Year
  Sex: Male
  Weight: 60 kg

DRUGS (6)
  1. TECFIDERA [Suspect]
     Active Substance: DIMETHYL FUMARATE
     Indication: Relapsing-remitting multiple sclerosis
     Route: 050
     Dates: start: 20180612, end: 20180618
  2. TECFIDERA [Suspect]
     Active Substance: DIMETHYL FUMARATE
     Route: 050
     Dates: start: 20180619, end: 20180702
  3. TECFIDERA [Suspect]
     Active Substance: DIMETHYL FUMARATE
     Dosage: 240 MG/120 MG
     Route: 050
     Dates: start: 20180703, end: 20180709
  4. TECFIDERA [Suspect]
     Active Substance: DIMETHYL FUMARATE
     Route: 050
     Dates: start: 20180710, end: 20210221
  5. REBAMIPIDE [Concomitant]
     Active Substance: REBAMIPIDE
     Indication: Abdominal discomfort
     Route: 050
     Dates: end: 20200510
  6. REBAMIPIDE [Concomitant]
     Active Substance: REBAMIPIDE
     Indication: Abdominal discomfort
     Route: 050
     Dates: end: 20200510

REACTIONS (5)
  - Multiple sclerosis relapse [Recovered/Resolved with Sequelae]
  - Lymphocyte count decreased [Recovered/Resolved]
  - Gastrointestinal disorder [Not Recovered/Not Resolved]
  - Multiple sclerosis [Unknown]
  - Therapeutic product effect incomplete [Unknown]

NARRATIVE: CASE EVENT DATE: 20180625
